FAERS Safety Report 16427659 (Version 3)
Quarter: 2019Q2

REPORT INFORMATION
  Report Type: Spontaneous
  Country: FR (occurrence: FR)
  Receive Date: 20190613
  Receipt Date: 20190619
  Transmission Date: 20190711
  Serious: No
  Sender: FDA-Public Use
  Company Number: FR-PFIZER INC-2019252805

PATIENT
  Age: 76 Year
  Sex: Female

DRUGS (5)
  1. AMPHOTERICIN B. [Suspect]
     Active Substance: AMPHOTERICIN B
     Indication: SCOPULARIOPSIS INFECTION
     Dosage: UNK
  2. VORICONAZOLE. [Suspect]
     Active Substance: VORICONAZOLE
     Indication: SCOPULARIOPSIS INFECTION
     Dosage: PLASMA CONCENTRATION AT 6.5 MG/L
     Route: 042
  3. TERBINAFINE. [Suspect]
     Active Substance: TERBINAFINE
     Indication: SCOPULARIOPSIS INFECTION
     Dosage: UNK
  4. MICAFUNGIN. [Suspect]
     Active Substance: MICAFUNGIN SODIUM
     Indication: SCOPULARIOPSIS INFECTION
     Dosage: 100 MG, 1X/DAY (WAS INITIATED ASSOCIATED WITH LOCAL TERBINAFINE CREAM)HIGH-DOSE
     Route: 042
  5. MICAFUNGIN. [Suspect]
     Active Substance: MICAFUNGIN SODIUM
     Dosage: 200 MG, 1X/DAY (AFTER 3 WEEKS OF TREATMENT, ADMINISTERED FOR 4 WEEKS)
     Route: 042

REACTIONS (2)
  - Off label use [Unknown]
  - Product use in unapproved indication [Unknown]
